FAERS Safety Report 16453777 (Version 2)
Quarter: 2019Q2

REPORT INFORMATION
  Report Type: Spontaneous
  Country: BE (occurrence: BE)
  Receive Date: 20190619
  Receipt Date: 20190624
  Transmission Date: 20190711
  Serious: Yes (Hospitalization)
  Sender: FDA-Public Use
  Company Number: BE-ASTRAZENECA-2019SE86997

PATIENT
  Age: 36 Year
  Sex: Male

DRUGS (1)
  1. OMEPRAZOLE. [Suspect]
     Active Substance: OMEPRAZOLE
     Indication: PRODUCT USED FOR UNKNOWN INDICATION
     Dosage: 40 MG (56 TABLETS), UNKNOWN FREQUENCY
     Route: 048

REACTIONS (9)
  - Loss of consciousness [Recovering/Resolving]
  - Arthralgia [Recovering/Resolving]
  - Dizziness [Recovering/Resolving]
  - Hypertension [Recovering/Resolving]
  - Nausea [Recovering/Resolving]
  - Hypersensitivity [Recovering/Resolving]
  - Paraesthesia [Recovering/Resolving]
  - Pruritus [Recovering/Resolving]
  - Rash erythematous [Recovering/Resolving]

NARRATIVE: CASE EVENT DATE: 20190528
